FAERS Safety Report 9772549 (Version 2)
Quarter: 2014Q2

REPORT INFORMATION
  Report Type: Spontaneous
  Country: US (occurrence: US)
  Receive Date: 20131219
  Receipt Date: 20140606
  Transmission Date: 20141212
  Serious: Yes (Hospitalization)
  Sender: FDA-Public Use
  Company Number: US-B.I. PHARMACEUTICALS,INC./RIDGEFIELD-2013-BI-42409BP

PATIENT
  Age: 82 Year
  Sex: Female
  Weight: 48.99 kg

DRUGS (7)
  1. PRADAXA [Suspect]
     Indication: ATRIAL FIBRILLATION
     Dosage: 300 MG
     Route: 048
     Dates: start: 20120223, end: 20120831
  2. METOPROLOL [Concomitant]
     Dosage: 100 MG
     Route: 048
  3. OMEGA-3 FISH OIL [Concomitant]
     Route: 065
  4. OMEPRAZOLE [Concomitant]
     Dosage: 20 MG
     Route: 048
     Dates: start: 2008
  5. SIMVASTATIN [Concomitant]
     Dosage: 20 MG
     Route: 048
     Dates: start: 2011
  6. ASPIRIN [Concomitant]
     Dosage: 325 MG
     Route: 048
  7. DIGOXIN [Concomitant]
     Dosage: 0.125 MG
     Route: 048

REACTIONS (6)
  - Gastrointestinal haemorrhage [Unknown]
  - Splenic rupture [Unknown]
  - Peritoneal haemorrhage [Unknown]
  - Anaemia [Unknown]
  - Incision site haematoma [Unknown]
  - Postoperative wound infection [Unknown]
